FAERS Safety Report 11090436 (Version 2)
Quarter: 2015Q2

REPORT INFORMATION
  Report Type: Spontaneous
  Country: US (occurrence: US)
  Receive Date: 20150505
  Receipt Date: 20150512
  Transmission Date: 20150821
  Serious: Yes (Death)
  Sender: FDA-Public Use
  Company Number: US-MERCK-1505USA000329

PATIENT
  Age: 72 Year
  Sex: Female

DRUGS (2)
  1. YERVOY [Concomitant]
     Active Substance: IPILIMUMAB
     Dosage: UNK
  2. KEYTRUDA [Suspect]
     Active Substance: PEMBROLIZUMAB
     Indication: MALIGNANT MELANOMA
     Dosage: ONE INFUSION, 138MG
     Dates: start: 20141030, end: 20141030

REACTIONS (1)
  - Death [Fatal]

NARRATIVE: CASE EVENT DATE: 20141115
